FAERS Safety Report 20658255 (Version 3)
Quarter: 2022Q3

REPORT INFORMATION
  Report Type: Report from Study
  Country: US (occurrence: US)
  Receive Date: 20220331
  Receipt Date: 20220720
  Transmission Date: 20221026
  Serious: Yes (Other)
  Sender: FDA-Public Use
  Company Number: US-NOVARTISPH-NVSC2022US071228

PATIENT
  Age: 70 Year
  Sex: Female

DRUGS (3)
  1. ENTRESTO [Suspect]
     Active Substance: SACUBITRIL\VALSARTAN
     Indication: Product used for unknown indication
     Dosage: UNK UNK, BID
     Route: 048
     Dates: start: 202107
  2. METOPROLOL [Suspect]
     Active Substance: METOPROLOL
     Indication: Blood pressure abnormal
     Dosage: UNK
     Route: 065
  3. METOPROLOL [Suspect]
     Active Substance: METOPROLOL
     Dosage: 50 MG, BID
     Route: 048

REACTIONS (7)
  - Cerebrovascular accident [Unknown]
  - Seizure [Unknown]
  - Myocardial infarction [Unknown]
  - Product confusion [Unknown]
  - Tinnitus [Unknown]
  - Cough [Unknown]
  - Wrong technique in product usage process [Unknown]

NARRATIVE: CASE EVENT DATE: 20220101
